FAERS Safety Report 17597447 (Version 3)
Quarter: 2020Q2

REPORT INFORMATION
  Report Type: Spontaneous
  Country: US (occurrence: US)
  Receive Date: 20200330
  Receipt Date: 20200420
  Transmission Date: 20200713
  Serious: Yes (Death, Hospitalization, Other)
  Sender: FDA-Public Use
  Company Number: US-009507513-2003USA010400

PATIENT
  Sex: Male
  Weight: 80.73 kg

DRUGS (1)
  1. JANUVIA [Suspect]
     Active Substance: SITAGLIPTIN PHOSPHATE
     Indication: TYPE 2 DIABETES MELLITUS
     Dosage: 100 MILLIGRAM, ONCE DAILY
     Route: 048
     Dates: start: 20110121, end: 201203

REACTIONS (18)
  - Pancreatic carcinoma [Fatal]
  - Malignant ascites [Not Recovered/Not Resolved]
  - Dehydration [Unknown]
  - Tobacco abuse [Not Recovered/Not Resolved]
  - Insomnia [Unknown]
  - Weight decreased [Unknown]
  - Hypotension [Unknown]
  - Claustrophobia [Unknown]
  - Gastrointestinal haemorrhage [Not Recovered/Not Resolved]
  - Acute kidney injury [Not Recovered/Not Resolved]
  - Nicotine dependence [Not Recovered/Not Resolved]
  - Oesophagitis [Unknown]
  - Sepsis [Unknown]
  - Tachycardia [Unknown]
  - Drug abuse [Not Recovered/Not Resolved]
  - Overweight [Unknown]
  - Back pain [Unknown]
  - Staphylococcal bacteraemia [Not Recovered/Not Resolved]

NARRATIVE: CASE EVENT DATE: 2018
